FAERS Safety Report 4851932-1 (Version None)
Quarter: 2005Q4

REPORT INFORMATION
  Report Type: 
  Country: None (occurrence: None)
  Receive Date: 20051209
  Receipt Date: 20051128
  Transmission Date: 20060501
  Serious: Yes (Hospitalization)
  Sender: FDA-Public Use
  Company Number: 2005163183

PATIENT
  Age: 74 Year
  Sex: Female

DRUGS (18)
  1. DOXYCYCLINE [Suspect]
     Indication: LOWER RESPIRATORY TRACT INFECTION
     Dosage: (200 + 100 MG), ORAL
     Route: 048
     Dates: end: 20051021
  2. DOXYCYCLINE [Suspect]
     Indication: LOWER RESPIRATORY TRACT INFECTION
     Dosage: (200 + 100 MG), ORAL
     Route: 048
     Dates: start: 20051014
  3. AMINOPHYLLIN [Concomitant]
  4. LISINOPRIL [Concomitant]
  5. AMITRIPTYLINE HCL [Concomitant]
  6. DOCUSATE (DOCUSATE) [Concomitant]
  7. SALBUTAMOL (SALBUTAMOL) [Concomitant]
  8. PROCHLORPERAZINE MALEATE [Concomitant]
  9. LANSOPRAZOLE [Concomitant]
  10. BECLOMETHASONE (BECLOMETASONE) [Concomitant]
  11. ADCAL-D3 (CALCIUM CARBONATE, COLECALCIFEROL) [Concomitant]
  12. IPRATROPIUM BROMIDE [Concomitant]
  13. FUROSEMIDE [Concomitant]
  14. CARBIMAZOLE (CARBIMAZOLE) [Concomitant]
  15. PARACETAMOL (PARACETAMOL) [Concomitant]
  16. SENNA (SENNA) [Concomitant]
  17. TRICLOFOS (TRICLOFOS) [Concomitant]
  18. DOMPERIDONE (DOMPERIDONE) [Concomitant]

REACTIONS (11)
  - ANOREXIA [None]
  - BLOOD ALBUMIN ABNORMAL [None]
  - BLOOD ALKALINE PHOSPHATASE INCREASED [None]
  - BLOOD BILIRUBIN INCREASED [None]
  - CONFUSIONAL STATE [None]
  - GAMMA-GLUTAMYLTRANSFERASE INCREASED [None]
  - HYPERSOMNIA [None]
  - PROTEIN TOTAL DECREASED [None]
  - RASH [None]
  - SOMNOLENCE [None]
  - VOMITING [None]
